FAERS Safety Report 24370800 (Version 5)
Quarter: 2025Q2

REPORT INFORMATION
  Report Type: Report from Study
  Country: US (occurrence: US)
  Receive Date: 20240927
  Receipt Date: 20250505
  Transmission Date: 20250716
  Serious: Yes (Hospitalization, Other)
  Sender: SUNOVION
  Company Number: US-SUMITOMO PHARMA SWITZERLAND GMBH-2024SPA002781

PATIENT

DRUGS (4)
  1. ORGOVYX [Suspect]
     Active Substance: RELUGOLIX
     Indication: Prostate cancer
     Dosage: 360 MG, SINGLE
     Route: 048
  2. ORGOVYX [Suspect]
     Active Substance: RELUGOLIX
     Dosage: 120 MG, QD
     Route: 048
     Dates: start: 20221026
  3. AMLODIPINE [Concomitant]
     Active Substance: AMLODIPINE BESYLATE
     Route: 065
  4. PLUVICTO [Concomitant]
     Active Substance: LUTETIUM LU-177 VIPIVOTIDE TETRAXETAN
     Route: 065

REACTIONS (11)
  - Sepsis [Unknown]
  - Nephrolithiasis [Unknown]
  - Blood test abnormal [Unknown]
  - Adverse reaction [Unknown]
  - Prostatic specific antigen increased [Not Recovered/Not Resolved]
  - Obstruction [Unknown]
  - Platelet count decreased [Unknown]
  - Sciatica [Unknown]
  - Haemoglobin decreased [Unknown]
  - Asthenia [Unknown]
  - Drug ineffective [Unknown]
